FAERS Safety Report 7700524-5 (Version None)
Quarter: 2011Q3

REPORT INFORMATION
  Report Type: 
  Country: None (occurrence: None)
  Receive Date: 20110822
  Receipt Date: 20110808
  Transmission Date: 20111222
  Serious: Yes (Hospitalization)
  Sender: FDA-Public Use
  Company Number: BR-MYLANLABS-2011S1016836

PATIENT
  Age: 27 Year
  Sex: Female

DRUGS (2)
  1. KETOPROFEN [Suspect]
     Route: 065
  2. METOCLOPRAMIDE [Suspect]
     Route: 065

REACTIONS (1)
  - PORPHYRIA ACUTE [None]
